FAERS Safety Report 10681948 (Version 1)
Quarter: 2014Q4

REPORT INFORMATION
  Report Type: Spontaneous
  Country: DE (occurrence: DE)
  Receive Date: 20141230
  Receipt Date: 20141230
  Transmission Date: 20150529
  Serious: Yes (Hospitalization)
  Sender: FDA-Public Use
  Company Number: DE-AMGEN-DEUSP2014100593

PATIENT
  Age: 66 Year
  Sex: Female
  Weight: 67 kg

DRUGS (3)
  1. VITAMIN D                          /00107901/ [Concomitant]
     Active Substance: ERGOCALCIFEROL
  2. PROLIA [Suspect]
     Active Substance: DENOSUMAB
     Indication: OSTEOPOROSIS
     Dosage: 60 MG, Q6MO
     Route: 058
     Dates: start: 201310
  3. CALCIUM [Concomitant]
     Active Substance: CALCIUM

REACTIONS (2)
  - Jaw disorder [Not Recovered/Not Resolved]
  - Diverticulitis [Not Recovered/Not Resolved]

NARRATIVE: CASE EVENT DATE: 201401
